FAERS Safety Report 6767740-0 (Version None)
Quarter: 2010Q2

REPORT INFORMATION
  Report Type: 
  Country: None (occurrence: None)
  Receive Date: 20100610
  Receipt Date: 20100531
  Transmission Date: 20101027
  Serious: Yes (Other)
  Sender: FDA-Public Use
  Company Number: 2010EU002209

PATIENT
  Age: 29 Year
  Sex: Male

DRUGS (1)
  1. MYCAMINE [Suspect]
     Dates: start: 20090727, end: 20090803

REACTIONS (1)
  - ENTEROCOLITIS INFECTIOUS [None]
